FAERS Safety Report 8840163 (Version 1)
Quarter: 2012Q4

REPORT INFORMATION
  Report Type: 
  Country: DE (occurrence: DE)
  Receive Date: 20121015
  Receipt Date: 20121015
  Transmission Date: 20130627
  Serious: Yes (Other)
  Sender: FDA-Public Use
  Company Number: DE-UCBSA-068563

PATIENT
  Age: 30 Year
  Sex: Female
  Weight: 108 kg

DRUGS (4)
  1. KEPPRA [Suspect]
     Indication: EPILEPSY
     Route: 048
     Dates: start: 20100225, end: 20101029
  2. LAMICTAL [Suspect]
     Indication: EPILEPSY
     Route: 048
     Dates: start: 20100225, end: 20101029
  3. CLOZAPINE [Suspect]
     Indication: SCHIZOPHRENIA
     Dosage: 100MG-0-200MG-200MG
     Route: 048
     Dates: start: 20100225, end: 20101029
  4. NASIVIN [Concomitant]
     Indication: NASOPHARYNGITIS
     Route: 045
     Dates: start: 201010, end: 201010

REACTIONS (5)
  - Premature delivery [Unknown]
  - Polyhydramnios [Recovered/Resolved]
  - Foetal growth restriction [Recovered/Resolved]
  - Foetal distress syndrome [Recovered/Resolved]
  - Pregnancy [Recovered/Resolved]
